FAERS Safety Report 24638723 (Version 1)
Quarter: 2024Q4

REPORT INFORMATION
  Report Type: Spontaneous
  Country: US (occurrence: US)
  Receive Date: 20241119
  Receipt Date: 20241119
  Transmission Date: 20250115
  Serious: Yes (Other)
  Sender: TARO
  Company Number: US-TARO PHARMACEUTICALS USA INC.-2024TAR02261

PATIENT

DRUGS (1)
  1. FLUOROURACIL [Suspect]
     Active Substance: FLUOROURACIL
     Indication: Skin cancer
     Dosage: UNK
     Route: 061
     Dates: start: 200911

REACTIONS (4)
  - Hyphaema [Unknown]
  - Visual impairment [Unknown]
  - Conjunctival oedema [Unknown]
  - Accidental exposure to product [Unknown]

NARRATIVE: CASE EVENT DATE: 20241104
